FAERS Safety Report 9492062 (Version 1)
Quarter: 2013Q3

REPORT INFORMATION
  Report Type: Spontaneous
  Country: US (occurrence: US)
  Receive Date: 20130830
  Receipt Date: 20130830
  Transmission Date: 20140515
  Serious: No
  Sender: FDA-Public Use
  Company Number: US-009507513-1308USA015091

PATIENT
  Sex: Male

DRUGS (3)
  1. CLARITIN [Suspect]
     Indication: SNEEZING
     Dosage: UNK, UNKNOWN
     Route: 048
  2. CLARITIN [Suspect]
     Indication: RHINORRHOEA
  3. CLARITIN [Suspect]
     Indication: EYE PRURITUS

REACTIONS (1)
  - Drug ineffective [Unknown]
